FAERS Safety Report 21795277 (Version 1)
Quarter: 2022Q4

REPORT INFORMATION
  Report Type: Spontaneous
  Country: US (occurrence: None)
  Receive Date: 20221228
  Receipt Date: 20221228
  Transmission Date: 20230113
  Serious: Yes (Hospitalization)
  Sender: FDA-Public Use
  Company Number: None

PATIENT
  Sex: Female

DRUGS (3)
  1. MYCOPHENOLIC ACID [Suspect]
     Active Substance: MYCOPHENOLIC ACID
     Indication: Takayasu^s arteritis
     Dosage: 250 MG ORAL??TAKE 6 CAPSULES (1500 MG) BY MOUTH TWICE DAILY?
     Route: 048
     Dates: start: 20190731
  2. CIMZIA [Concomitant]
     Active Substance: CERTOLIZUMAB PEGOL
  3. CIMZIA PREFL KIT [Concomitant]

REACTIONS (2)
  - Therapy interrupted [None]
  - Transplant rejection [None]
